FAERS Safety Report 9089249 (Version 2)
Quarter: 2013Q1

REPORT INFORMATION
  Report Type: Spontaneous
  Country: CN (occurrence: CN)
  Receive Date: 20130201
  Receipt Date: 20130321
  Transmission Date: 20140127
  Serious: Yes (Death, Other)
  Sender: FDA-Public Use
  Company Number: CN-009507513-1301CHN013548

PATIENT
  Sex: 0

DRUGS (5)
  1. CANCIDAS [Suspect]
     Indication: SYSTEMIC MYCOSIS
     Dosage: UNK
     Dates: start: 200705, end: 201005
  2. MEROPENEM [Concomitant]
  3. BIAPENEM [Concomitant]
  4. SULPERAZONE [Concomitant]
  5. TEICOPLANIN [Concomitant]

REACTIONS (3)
  - Liver injury [Fatal]
  - Respiratory failure [Fatal]
  - Oncocytoma [Fatal]
